FAERS Safety Report 17106292 (Version 1)
Quarter: 2019Q4

REPORT INFORMATION
  Report Type: Report from Study
  Country: CA (occurrence: CA)
  Receive Date: 20191203
  Receipt Date: 20191203
  Transmission Date: 20200122
  Serious: Yes (Other)
  Sender: FDA-Public Use
  Company Number: CA-ROCHE-2486884

PATIENT
  Sex: Female

DRUGS (2)
  1. TECENTRIQ [Suspect]
     Active Substance: ATEZOLIZUMAB
     Dosage: DRUG DOSE FIRST ADMINISTERED IS 1200 MG MILLIGRAM(S)
     Route: 042
     Dates: start: 20191123
  2. TECENTRIQ [Suspect]
     Active Substance: ATEZOLIZUMAB
     Indication: SMALL CELL LUNG CANCER
     Dosage: DRUG DOSE FIRST ADMINISTERED IS 1200 MG MILLIGRAM(S)
     Route: 042
     Dates: start: 20190905

REACTIONS (1)
  - Colitis [Unknown]
